FAERS Safety Report 9896515 (Version 1)
Quarter: 2014Q1

REPORT INFORMATION
  Report Type: Spontaneous
  Country: US (occurrence: US)
  Receive Date: 20140213
  Receipt Date: 20140213
  Transmission Date: 20141002
  Serious: No
  Sender: FDA-Public Use
  Company Number: US-BRISTOL-MYERS SQUIBB COMPANY-18849315

PATIENT
  Age: 76 Year
  Sex: Female
  Weight: 57.14 kg

DRUGS (17)
  1. ABATACEPT SUBQ INJECTION 125MG/ML [Suspect]
     Indication: RHEUMATOID ARTHRITIS
     Dosage: 1DF:125MG/ML
     Route: 058
  2. LASIX [Concomitant]
  3. METHOTREXATE [Concomitant]
  4. MAGNESIUM [Concomitant]
  5. METOPROLOL [Concomitant]
  6. POTASSIUM [Concomitant]
  7. SPIRONOLACTONE [Concomitant]
  8. SENOKOT [Concomitant]
  9. ADVAIR [Concomitant]
  10. NEXIUM [Concomitant]
  11. CARDIZEM [Concomitant]
  12. LANOXIN [Concomitant]
  13. CRANBERRY [Concomitant]
  14. VITAMIN B12 [Concomitant]
  15. CALCIUM [Concomitant]
  16. ASPIRIN [Concomitant]
  17. ROPINIROLE [Concomitant]

REACTIONS (3)
  - Nausea [Unknown]
  - Asthenia [Unknown]
  - Hypersensitivity [Unknown]
